FAERS Safety Report 12410698 (Version 2)
Quarter: 2018Q4

REPORT INFORMATION
  Report Type: Spontaneous
  Country: US (occurrence: US)
  Receive Date: 20160527
  Receipt Date: 20181206
  Transmission Date: 20190204
  Serious: Yes (Other)
  Sender: FDA-Public Use
  Company Number: US-BRISTOL-MYERS SQUIBB COMPANY-BMS-2016-040158

PATIENT
  Sex: Female

DRUGS (1)
  1. ORENCIA [Suspect]
     Active Substance: ABATACEPT
     Indication: RHEUMATOID ARTHRITIS
     Dosage: 500 MG, UNK
     Route: 042

REACTIONS (6)
  - Groin pain [Unknown]
  - Arthralgia [Unknown]
  - Drug ineffective [Unknown]
  - Pneumonia [Unknown]
  - Blood urine present [Unknown]
  - Hepatic enzyme increased [Unknown]
